FAERS Safety Report 18324207 (Version 5)
Quarter: 2021Q1

REPORT INFORMATION
  Report Type: Spontaneous
  Country: JP (occurrence: JP)
  Receive Date: 20200928
  Receipt Date: 20210218
  Transmission Date: 20210419
  Serious: Yes (Death, Life-Threatening, Other)
  Sender: FDA-Public Use
  Company Number: JP-ASTRAZENECA-2020SF24350

PATIENT
  Age: 16725 Day
  Sex: Male
  Weight: 61 kg

DRUGS (13)
  1. AZOSEMIDE [Suspect]
     Active Substance: AZOSEMIDE
     Indication: TYPE 2 DIABETES MELLITUS
     Route: 048
     Dates: start: 20200912, end: 20200921
  2. ARTIST [Suspect]
     Active Substance: CARVEDILOL
     Indication: TYPE 2 DIABETES MELLITUS
     Route: 048
     Dates: start: 20200917, end: 20200918
  3. AZOSEMIDE [Suspect]
     Active Substance: AZOSEMIDE
     Indication: TYPE 2 DIABETES MELLITUS
     Route: 048
     Dates: start: 20200924
  4. ALDACTONE A [Suspect]
     Active Substance: SPIRONOLACTONE
     Indication: TYPE 2 DIABETES MELLITUS
     Route: 048
     Dates: start: 20200924
  5. ALDACTONE A [Suspect]
     Active Substance: SPIRONOLACTONE
     Indication: TYPE 2 DIABETES MELLITUS
     Route: 048
     Dates: start: 20200912, end: 20200921
  6. LOSARTAN POTASSIUM. [Concomitant]
     Active Substance: LOSARTAN POTASSIUM
     Indication: TYPE 2 DIABETES MELLITUS
     Route: 048
     Dates: start: 20200911, end: 20200921
  7. ARTIST [Suspect]
     Active Substance: CARVEDILOL
     Indication: TYPE 2 DIABETES MELLITUS
     Route: 048
     Dates: start: 20200926
  8. HUMALOG [Concomitant]
     Active Substance: INSULIN LISPRO
     Indication: TYPE 2 DIABETES MELLITUS
     Dosage: 6 TO 8U
     Route: 058
  9. ARTIST [Suspect]
     Active Substance: CARVEDILOL
     Indication: TYPE 2 DIABETES MELLITUS
     Route: 048
     Dates: start: 20200919, end: 20200921
  10. LASIX [Concomitant]
     Active Substance: FUROSEMIDE
     Indication: TYPE 2 DIABETES MELLITUS
     Route: 042
     Dates: start: 20200910, end: 20200914
  11. FORXIGA [Suspect]
     Active Substance: DAPAGLIFLOZIN
     Indication: TYPE 2 DIABETES MELLITUS
     Route: 048
     Dates: start: 20200920, end: 20200921
  12. METHYCOBAL [Concomitant]
     Active Substance: METHYLCOBALAMIN
     Indication: TYPE 2 DIABETES MELLITUS
     Route: 048
     Dates: start: 20200911, end: 20200921
  13. INSULIN GLARGINE BS[BIOSIMILAR 1] [Concomitant]
     Active Substance: INSULIN GLARGINE
     Indication: TYPE 2 DIABETES MELLITUS
     Route: 058

REACTIONS (3)
  - Embolic cerebral infarction [Fatal]
  - Brain herniation [Unknown]
  - Dehydration [Unknown]

NARRATIVE: CASE EVENT DATE: 20200921
